FAERS Safety Report 8995827 (Version 2)
Quarter: 2013Q1

REPORT INFORMATION
  Report Type: Spontaneous
  Country: US (occurrence: US)
  Receive Date: 20130103
  Receipt Date: 20130118
  Transmission Date: 20140127
  Serious: Yes (Other)
  Sender: FDA-Public Use
  Company Number: US-ABBOTT-13P-163-1030397-00

PATIENT
  Age: 40 Year
  Sex: 0

DRUGS (1)
  1. HUMIRA [Suspect]
     Indication: CROHN^S DISEASE

REACTIONS (16)
  - Ileocolectomy [Unknown]
  - Herpes zoster [Unknown]
  - Staphylococcal infection [Unknown]
  - Migraine [Unknown]
  - Postoperative wound infection [Unknown]
  - Post procedural complication [Unknown]
  - Mouth cyst [Unknown]
  - Intestinal fistula [Unknown]
  - Enterovesical fistula [Unknown]
  - Rectal ulcer [Unknown]
  - Rectal ulcer [Unknown]
  - Nephrolithiasis [Unknown]
  - Cystitis interstitial [Unknown]
  - Fibromyalgia [Unknown]
  - Eye disorder [Unknown]
  - Crohn^s disease [Unknown]
